FAERS Safety Report 7236586-1 (Version None)
Quarter: 2011Q1

REPORT INFORMATION
  Report Type: 
  Country: None (occurrence: None)
  Receive Date: 20110120
  Receipt Date: 20110114
  Transmission Date: 20110831
  Serious: Yes (Hospitalization)
  Sender: FDA-Public Use
  Company Number: JP-CEPHALON-2011000317

PATIENT
  Age: 42 Year
  Sex: Male

DRUGS (1)
  1. BENDAMUSTINE HCL [Suspect]
     Indication: B-CELL LYMPHOMA
     Route: 042
     Dates: start: 20110104, end: 20110105

REACTIONS (4)
  - PYREXIA [None]
  - ANGIOPATHY [None]
  - PALPITATIONS [None]
  - DYSPNOEA [None]
